FAERS Safety Report 7405399-X (Version None)
Quarter: 2011Q2

REPORT INFORMATION
  Report Type: 
  Country: None (occurrence: None)
  Receive Date: 20110411
  Receipt Date: 20110314
  Transmission Date: 20111010
  Serious: Yes (Hospitalization)
  Sender: FDA-Public Use
  Company Number: US-BAYER-201040838NA

PATIENT
  Age: 31 Year
  Sex: Female
  Weight: 73.923 kg

DRUGS (4)
  1. YASMIN [Suspect]
     Indication: ACNE
     Dosage: UNK
  2. YASMIN [Suspect]
     Indication: ORAL CONTRACEPTION
  3. YAZ [Suspect]
     Indication: ACNE
  4. OCELLA [Suspect]
     Indication: ACNE

REACTIONS (3)
  - MUSCULOSKELETAL DISCOMFORT [None]
  - CHEST PAIN [None]
  - PULMONARY EMBOLISM [None]
